FAERS Safety Report 12702237 (Version 1)
Quarter: 2016Q3

REPORT INFORMATION
  Report Type: Spontaneous
  Country: US (occurrence: US)
  Receive Date: 20160831
  Receipt Date: 20160831
  Transmission Date: 20161109
  Serious: Yes (Other)
  Sender: FDA-Public Use
  Company Number: US-LPDUSPRD-20160761

PATIENT
  Age: 32 Year
  Sex: Female

DRUGS (2)
  1. PHENTOLAMINE [Concomitant]
     Active Substance: PHENTOLAMINE
     Dosage: DOSE UNKNOWN
     Route: 042
  2. DOPAMINE [Suspect]
     Active Substance: DOPAMINE\DOPAMINE HYDROCHLORIDE
     Dosage: DOSE UNKNOWN
     Route: 042

REACTIONS (2)
  - Cardiogenic shock [Unknown]
  - Cardiomyopathy [Unknown]
